FAERS Safety Report 14179001 (Version 2)
Quarter: 2017Q4

REPORT INFORMATION
  Report Type: Spontaneous
  Country: US (occurrence: US)
  Receive Date: 20171110
  Receipt Date: 20171121
  Transmission Date: 20180321
  Serious: Yes (Other)
  Sender: FDA-Public Use
  Company Number: US-JNJFOC-20171109184

PATIENT
  Age: 79 Year
  Sex: Female
  Weight: 51 kg

DRUGS (6)
  1. MULTIVITAMINS [Concomitant]
     Active Substance: VITAMINS
  2. METOPROLOL. [Concomitant]
     Active Substance: METOPROLOL
  3. GLUCOSAMINE [Concomitant]
     Active Substance: GLUCOSAMINE
  4. IMBRUVICA [Suspect]
     Active Substance: IBRUTINIB
     Indication: CHRONIC LYMPHOCYTIC LEUKAEMIA
     Route: 048
     Dates: start: 20170417
  5. LOSARTAN. [Concomitant]
     Active Substance: LOSARTAN
  6. ROSUVASTATIN CALCIUM. [Concomitant]
     Active Substance: ROSUVASTATIN CALCIUM

REACTIONS (2)
  - Overdose [Unknown]
  - Malaise [Unknown]

NARRATIVE: CASE EVENT DATE: 20171014
